FAERS Safety Report 6354319-8 (Version None)
Quarter: 2009Q3

REPORT INFORMATION
  Report Type: 
  Country: None (occurrence: None)
  Receive Date: 20090909
  Receipt Date: 20090831
  Transmission Date: 20100115
  Serious: Yes (Hospitalization)
  Sender: FDA-Public Use
  Company Number: 09-001316

PATIENT
  Age: 45 Year
  Sex: Female
  Weight: 87.1 kg

DRUGS (14)
  1. LOESTRIN 24 FE [Suspect]
     Indication: HORMONE REPLACEMENT THERAPY
     Dosage: 20/1000 UG, QD, ORAL
     Route: 048
     Dates: start: 20090601, end: 20090811
  2. CARDIZEM [Concomitant]
  3. SYNTHROID [Concomitant]
  4. ZANAFLEX [Concomitant]
  5. LYRICA [Concomitant]
  6. ZONEGRAN [Concomitant]
  7. CYMBALTA [Concomitant]
  8. ULTRAM ER  (TRAMADOL HYDROCHLORIDE) [Concomitant]
  9. AZMANEX SPRAY (EXCEPT INHALATION) [Concomitant]
  10. NASONEX [Concomitant]
  11. XOPENEX [Concomitant]
  12. XANAX [Concomitant]
  13. VICODIN [Concomitant]
  14. NITROGLYCERIN [Concomitant]

REACTIONS (4)
  - CHEST PAIN [None]
  - NAUSEA [None]
  - PALPITATIONS [None]
  - PANIC ATTACK [None]
